FAERS Safety Report 16961908 (Version 1)
Quarter: 2019Q4

REPORT INFORMATION
  Report Type: Spontaneous
  Country: SG (occurrence: SG)
  Receive Date: 20191025
  Receipt Date: 20191025
  Transmission Date: 20200122
  Serious: Yes (Other)
  Sender: FDA-Public Use
  Company Number: SG-ROCHE-2442265

PATIENT
  Sex: Male
  Weight: 47.1 kg

DRUGS (31)
  1. RITUXIMAB. [Suspect]
     Active Substance: RITUXIMAB
     Dosage: RCHOP CYCLE 5
     Route: 065
     Dates: start: 20190418
  2. RITUXIMAB. [Suspect]
     Active Substance: RITUXIMAB
     Route: 065
     Dates: start: 20190813
  3. CYCLOPHOSPHAMIDE. [Suspect]
     Active Substance: CYCLOPHOSPHAMIDE
     Indication: DIFFUSE LARGE B-CELL LYMPHOMA
     Dosage: RCHOP CYCLE 1
     Route: 065
     Dates: start: 20190121
  4. VINCRISTINE [Suspect]
     Active Substance: VINCRISTINE
     Dosage: RCHOP CYCLE 6
     Route: 065
     Dates: start: 20190610
  5. PREDNISOLONE. [Suspect]
     Active Substance: PREDNISOLONE
     Dosage: RCHOP CYCLE 5
     Route: 065
     Dates: start: 20190418
  6. RITUXIMAB. [Suspect]
     Active Substance: RITUXIMAB
     Indication: DIFFUSE LARGE B-CELL LYMPHOMA
     Dosage: RCHOP CYCLE 1
     Route: 065
     Dates: start: 20190121
  7. DOXORUBICIN [Suspect]
     Active Substance: DOXORUBICIN
     Dosage: RCHOP CYCLE 5
     Route: 065
     Dates: start: 20190418
  8. VINCRISTINE [Suspect]
     Active Substance: VINCRISTINE
     Dosage: RCHOP CYCLE 2
     Route: 065
     Dates: start: 20190211
  9. OXALIPLATIN. [Suspect]
     Active Substance: OXALIPLATIN
     Indication: DIFFUSE LARGE B-CELL LYMPHOMA
     Route: 065
     Dates: start: 20190813
  10. METHOTREXATE. [Suspect]
     Active Substance: METHOTREXATE
     Indication: DIFFUSE LARGE B-CELL LYMPHOMA
     Route: 037
     Dates: start: 20190212
  11. CYCLOPHOSPHAMIDE. [Suspect]
     Active Substance: CYCLOPHOSPHAMIDE
     Dosage: RCHOP CYCLE 2
     Route: 065
     Dates: start: 20190211
  12. CYCLOPHOSPHAMIDE. [Suspect]
     Active Substance: CYCLOPHOSPHAMIDE
     Dosage: RCHOP CYCLE 5
     Route: 065
     Dates: start: 20190418
  13. CYCLOPHOSPHAMIDE. [Suspect]
     Active Substance: CYCLOPHOSPHAMIDE
     Dosage: RCHOP CYCLE 6
     Route: 065
     Dates: start: 20190610
  14. DOXORUBICIN [Suspect]
     Active Substance: DOXORUBICIN
     Indication: DIFFUSE LARGE B-CELL LYMPHOMA
     Dosage: RCHOP CYCLE 1
     Route: 065
     Dates: start: 20190121
  15. DOXORUBICIN [Suspect]
     Active Substance: DOXORUBICIN
     Dosage: RCHOP CYCLE 4
     Route: 065
     Dates: start: 20190326
  16. VINCRISTINE [Suspect]
     Active Substance: VINCRISTINE
     Indication: DIFFUSE LARGE B-CELL LYMPHOMA
     Dosage: RCHOP CYCLE 1
     Route: 065
     Dates: start: 20190121
  17. METHOTREXATE. [Suspect]
     Active Substance: METHOTREXATE
     Route: 037
     Dates: start: 20190326
  18. METHOTREXATE. [Suspect]
     Active Substance: METHOTREXATE
     Route: 037
     Dates: start: 20190418
  19. RITUXIMAB. [Suspect]
     Active Substance: RITUXIMAB
     Dosage: RCHOP CYCLE 2
     Route: 065
     Dates: start: 20190211
  20. CYCLOPHOSPHAMIDE. [Suspect]
     Active Substance: CYCLOPHOSPHAMIDE
     Dosage: RCHOP CYCLE 4
     Route: 065
     Dates: start: 20190326
  21. PREDNISOLONE. [Suspect]
     Active Substance: PREDNISOLONE
     Dosage: RCHOP CYCLE 2
     Route: 065
     Dates: start: 20190211
  22. PREDNISOLONE. [Suspect]
     Active Substance: PREDNISOLONE
     Dosage: RCHOP CYCLE 4
     Route: 065
     Dates: start: 20190326
  23. RITUXIMAB. [Suspect]
     Active Substance: RITUXIMAB
     Dosage: RCHOP CYCLE 4
     Route: 065
     Dates: start: 20190326
  24. DOXORUBICIN [Suspect]
     Active Substance: DOXORUBICIN
     Dosage: RCHOP CYCLE 2
     Route: 065
     Dates: start: 20190211
  25. DOXORUBICIN [Suspect]
     Active Substance: DOXORUBICIN
     Dosage: RCHOP CYCLE 6
     Route: 065
     Dates: start: 20190610
  26. VINCRISTINE [Suspect]
     Active Substance: VINCRISTINE
     Dosage: RCHOP CYCLE 5
     Route: 065
     Dates: start: 20190418
  27. RITUXIMAB. [Suspect]
     Active Substance: RITUXIMAB
     Dosage: RCHOP CYCLE 6
     Route: 065
     Dates: start: 20190610
  28. VINCRISTINE [Suspect]
     Active Substance: VINCRISTINE
     Dosage: RCHOP CYCLE 4
     Route: 065
     Dates: start: 20190326
  29. PREDNISOLONE. [Suspect]
     Active Substance: PREDNISOLONE
     Indication: DIFFUSE LARGE B-CELL LYMPHOMA
     Dosage: RCHOP CYCLE 1
     Route: 065
     Dates: start: 20190121
  30. PREDNISOLONE. [Suspect]
     Active Substance: PREDNISOLONE
     Dosage: RCHOP CYCLE 6
     Route: 065
     Dates: start: 20190610
  31. GEMCITABINE. [Suspect]
     Active Substance: GEMCITABINE
     Indication: DIFFUSE LARGE B-CELL LYMPHOMA
     Route: 065
     Dates: start: 20190813

REACTIONS (8)
  - Hepatitis B [Unknown]
  - Blood lactate dehydrogenase increased [Unknown]
  - Disease recurrence [Unknown]
  - Off label use [Unknown]
  - Product use issue [Unknown]
  - Colon neoplasm [Unknown]
  - Haemoglobin decreased [Unknown]
  - Ill-defined disorder [Unknown]
